FAERS Safety Report 25482186 (Version 5)
Quarter: 2025Q4

REPORT INFORMATION
  Report Type: Spontaneous
  Country: US (occurrence: US)
  Receive Date: 20250626
  Receipt Date: 20251121
  Transmission Date: 20260117
  Serious: Yes (Other)
  Sender: BRISTOL-MYERS SQUIBB COMPANY
  Company Number: US-BRISTOL-MYERS SQUIBB COMPANY-2025-090682

PATIENT
  Age: 39 Year
  Sex: Female

DRUGS (3)
  1. THALOMID [Suspect]
     Active Substance: THALIDOMIDE
     Indication: Lepromatous leprosy
     Dosage: FREQ- 28
  2. THALOMID [Suspect]
     Active Substance: THALIDOMIDE
     Dosage: WEEK
  3. THALOMID [Suspect]
     Active Substance: THALIDOMIDE
     Dosage: DRUG SEPARATE DOSAGE NUMBE: 28

REACTIONS (4)
  - Rash macular [Unknown]
  - Product distribution issue [Recovered/Resolved]
  - Therapy interrupted [Recovered/Resolved]
  - Type 2 lepra reaction [Unknown]

NARRATIVE: CASE EVENT DATE: 20250507
